FAERS Safety Report 24953075 (Version 1)
Quarter: 2025Q1

REPORT INFORMATION
  Report Type: Report from Study
  Country: US (occurrence: US)
  Receive Date: 20250211
  Receipt Date: 20250211
  Transmission Date: 20250409
  Serious: Yes (Other)
  Sender: ABBVIE
  Company Number: US-ABBVIE-6120750

PATIENT
  Age: 59 Year
  Sex: Female

DRUGS (3)
  1. CREON [Suspect]
     Active Substance: PANCRELIPASE AMYLASE\PANCRELIPASE LIPASE\PANCRELIPASE PROTEASE
     Indication: Adenocarcinoma gastric
     Route: 048
     Dates: start: 202410
  2. CREON [Suspect]
     Active Substance: PANCRELIPASE AMYLASE\PANCRELIPASE LIPASE\PANCRELIPASE PROTEASE
     Indication: Adenocarcinoma gastric
     Route: 048
     Dates: start: 20240304, end: 202406
  3. CREON [Suspect]
     Active Substance: PANCRELIPASE AMYLASE\PANCRELIPASE LIPASE\PANCRELIPASE PROTEASE
     Indication: Adenocarcinoma gastric
     Route: 048
     Dates: start: 202305, end: 202306

REACTIONS (8)
  - Dysphagia [Not Recovered/Not Resolved]
  - Enterostomy [Not Recovered/Not Resolved]
  - Oesophageal dilatation [Not Recovered/Not Resolved]
  - Vomiting [Unknown]
  - Weight decreased [Unknown]
  - Gastrectomy [Not Recovered/Not Resolved]
  - Product use in unapproved indication [Unknown]
  - Gastrectomy [Unknown]

NARRATIVE: CASE EVENT DATE: 20240101
